FAERS Safety Report 9888716 (Version 1)
Quarter: 2014Q1

REPORT INFORMATION
  Report Type: Spontaneous
  Country: US (occurrence: None)
  Receive Date: 20140207
  Receipt Date: 20140207
  Transmission Date: 20141002
  Serious: Yes (Death)
  Sender: FDA-Public Use
  Company Number: SYM-2014-16251

PATIENT
  Age: 55 Year
  Sex: Male

DRUGS (5)
  1. SALICYLATE [Suspect]
     Indication: PRODUCT USED FOR UNKNOWN INDICATION
     Route: 048
  2. ESCITALOPRAM [Suspect]
     Indication: PRODUCT USED FOR UNKNOWN INDICATION
     Route: 048
  3. VILAZODONE [Suspect]
     Indication: PRODUCT USED FOR UNKNOWN INDICATION
     Route: 048
  4. ALPRAZOLAM [Suspect]
     Indication: PRODUCT USED FOR UNKNOWN INDICATION
     Route: 048
  5. DULOXETINE [Suspect]
     Indication: PRODUCT USED FOR UNKNOWN INDICATION
     Route: 048

REACTIONS (30)
  - Poisoning [None]
  - Unresponsive to stimuli [None]
  - Exposure via ingestion [None]
  - Completed suicide [None]
  - Hypotension [None]
  - Bradycardia [None]
  - Respiratory rate decreased [None]
  - Haematemesis [None]
  - Nystagmus [None]
  - Livedo reticularis [None]
  - Tremor [None]
  - Muscle rigidity [None]
  - Hyperhidrosis [None]
  - Oxygen saturation decreased [None]
  - Blood lactic acid abnormal [None]
  - Aspartate aminotransferase increased [None]
  - Alanine aminotransferase increased [None]
  - Blood creatine phosphokinase increased [None]
  - Blood chloride increased [None]
  - Blood urea increased [None]
  - Blood potassium increased [None]
  - Blood bicarbonate decreased [None]
  - Blood creatinine increased [None]
  - Hyperthermia [None]
  - Cardio-respiratory arrest [None]
  - Electrocardiogram QRS complex prolonged [None]
  - Blood pH decreased [None]
  - Ventricular tachycardia [None]
  - Pulmonary oedema [None]
  - Intentional overdose [None]
